FAERS Safety Report 8342108-4 (Version None)
Quarter: 2012Q2

REPORT INFORMATION
  Report Type: 
  Country: None (occurrence: None)
  Receive Date: 20120507
  Receipt Date: 20120501
  Transmission Date: 20120825
  Serious: No
  Sender: FDA-Public Use
  Company Number: US-PFIZER INC-2012108616

PATIENT
  Sex: Male
  Weight: 77 kg

DRUGS (2)
  1. LIPITOR [Suspect]
     Dosage: UNK
     Route: 065
  2. CRESTOR [Suspect]
     Dosage: UNK
     Route: 065

REACTIONS (2)
  - MUSCLE SPASMS [None]
  - DRUG HYPERSENSITIVITY [None]
